FAERS Safety Report 10283215 (Version 4)
Quarter: 2015Q1

REPORT INFORMATION
  Report Type: Report from Study
  Country: CN (occurrence: CN)
  Receive Date: 20140708
  Receipt Date: 20150113
  Transmission Date: 20150720
  Serious: Yes (Death, Hospitalization)
  Sender: FDA-Public Use
  Company Number: PHHY2014CN082700

PATIENT
  Age: 78 Year
  Sex: Female

DRUGS (1)
  1. GLIVEC [Suspect]
     Active Substance: IMATINIB MESYLATE
     Indication: GASTROINTESTINAL STROMAL TUMOUR
     Dosage: 300 MG, PER DAY
     Route: 048
     Dates: start: 20110225

REACTIONS (7)
  - Neoplasm recurrence [Fatal]
  - Respiratory failure [Fatal]
  - Metastasis [Fatal]
  - Small intestinal perforation [Unknown]
  - Peritonitis [Unknown]
  - Circulatory collapse [Fatal]
  - Gastrointestinal stromal tumour [Fatal]

NARRATIVE: CASE EVENT DATE: 20120408
